FAERS Safety Report 4464198-1 (Version None)
Quarter: 2004Q4

REPORT INFORMATION
  Report Type: 
  Country: None (occurrence: None)
  Receive Date: 20041001
  Receipt Date: 20040921
  Transmission Date: 20050328
  Serious: Yes (Death)
  Sender: FDA-Public Use
  Company Number: US-GLAXOSMITHKLINE-A0527365A

PATIENT
  Age: 43 Year
  Sex: Male

DRUGS (1)
  1. PAXIL [Suspect]
     Route: 048
     Dates: start: 19991006

REACTIONS (2)
  - ABNORMAL BEHAVIOUR [None]
  - COMPLETED SUICIDE [None]
